FAERS Safety Report 7628286-0 (Version None)
Quarter: 2011Q3

REPORT INFORMATION
  Report Type: 
  Country: None (occurrence: None)
  Receive Date: 20110722
  Receipt Date: 20110719
  Transmission Date: 20111222
  Serious: Yes (Death)
  Sender: FDA-Public Use
  Company Number: GB-JNJFOC-20110706335

PATIENT
  Age: 43 Year
  Sex: Male

DRUGS (1)
  1. HALDOL [Suspect]
     Indication: SCHIZOPHRENIA
     Route: 065
     Dates: start: 20090601

REACTIONS (1)
  - MYOCARDIAL INFARCTION [None]
